FAERS Safety Report 7478010-X (Version None)
Quarter: 2011Q2

REPORT INFORMATION
  Report Type: 
  Country: None (occurrence: None)
  Receive Date: 20110511
  Receipt Date: 20110511
  Transmission Date: 20111010
  Serious: Yes (Other)
  Sender: FDA-Public Use
  Company Number: None

PATIENT
  Age: 58 Year
  Sex: Male
  Weight: 92.9874 kg

DRUGS (1)
  1. KLONOPIN [Suspect]
     Indication: SLEEP DISORDER
     Dosage: 2MG NIGHTLY PO
     Route: 048
     Dates: start: 20050101, end: 20110411

REACTIONS (5)
  - WITHDRAWAL SYNDROME [None]
  - MUSCLE SPASMS [None]
  - INSOMNIA [None]
  - ECONOMIC PROBLEM [None]
  - PAIN [None]
